FAERS Safety Report 5318951-2 (Version None)
Quarter: 2007Q2

REPORT INFORMATION
  Report Type: 
  Country: None (occurrence: None)
  Receive Date: 20070508
  Receipt Date: 20070427
  Transmission Date: 20071010
  Serious: Yes (Hospitalization, Other)
  Sender: FDA-Public Use
  Company Number: HQWYE688105MAR07

PATIENT
  Sex: Male
  Weight: 65 kg

DRUGS (7)
  1. MYLOTARG [Suspect]
     Indication: ACUTE MYELOID LEUKAEMIA RECURRENT
     Route: 041
     Dates: start: 20061130, end: 20061130
  2. MYLOTARG [Suspect]
     Route: 041
     Dates: start: 20061213, end: 20061213
  3. MAXIPIME [Concomitant]
     Indication: SEPSIS
     Route: 041
     Dates: start: 20061222, end: 20070104
  4. FUNGUARD [Concomitant]
     Indication: SEPSIS
     Route: 041
     Dates: start: 20061205, end: 20061218
  5. FUNGUARD [Concomitant]
     Route: 041
     Dates: start: 20061225, end: 20070104
  6. MEROPEN [Concomitant]
     Indication: SEPSIS
     Route: 041
     Dates: start: 20061202, end: 20061221
  7. ISEPACIN [Concomitant]
     Indication: SEPSIS
     Route: 041
     Dates: start: 20061204, end: 20070104

REACTIONS (8)
  - BLOOD CREATININE INCREASED [None]
  - BLOOD LACTATE DEHYDROGENASE INCREASED [None]
  - BLOOD UREA INCREASED [None]
  - BODY TEMPERATURE INCREASED [None]
  - C-REACTIVE PROTEIN INCREASED [None]
  - HYPOALBUMINAEMIA [None]
  - HYPOPROTEINAEMIA [None]
  - PERFORMANCE STATUS DECREASED [None]
